FAERS Safety Report 12070387 (Version 1)
Quarter: 2016Q1

REPORT INFORMATION
  Report Type: Spontaneous
  Country: US (occurrence: US)
  Receive Date: 20160211
  Receipt Date: 20160211
  Transmission Date: 20160526
  Serious: No
  Sender: FDA-Public Use
  Company Number: US-GLAXOSMITHKLINE-US2016016807

PATIENT
  Sex: Female

DRUGS (5)
  1. INCRUSE ELLIPTA [Suspect]
     Active Substance: UMECLIDINIUM BROMIDE
     Indication: PULMONARY CONGESTION
  2. ASPIRIN. [Concomitant]
     Active Substance: ASPIRIN
  3. ZOCOR [Concomitant]
     Active Substance: SIMVASTATIN
  4. INCRUSE ELLIPTA [Suspect]
     Active Substance: UMECLIDINIUM BROMIDE
     Indication: UPPER-AIRWAY COUGH SYNDROME
     Dosage: 1 PUFF(S), QD
     Route: 055
     Dates: start: 20160128
  5. OXYCODONE [Concomitant]
     Active Substance: OXYCODONE

REACTIONS (5)
  - Oral discomfort [Unknown]
  - Lower limb fracture [Recovering/Resolving]
  - Lip pain [Not Recovered/Not Resolved]
  - Fall [Recovered/Resolved]
  - Lip blister [Not Recovered/Not Resolved]

NARRATIVE: CASE EVENT DATE: 20160129
